FAERS Safety Report 6585331-1 (Version None)
Quarter: 2010Q1

REPORT INFORMATION
  Report Type: 
  Country: None (occurrence: None)
  Receive Date: 20100217
  Receipt Date: 20100206
  Transmission Date: 20100710
  Serious: Yes (Other)
  Sender: FDA-Public Use
  Company Number: B0631949A

PATIENT
  Sex: Female
  Weight: 76 kg

DRUGS (2)
  1. ALLI [Suspect]
     Route: 065
  2. NORDETTE-28 [Concomitant]
     Indication: CONTRACEPTION

REACTIONS (2)
  - ANAL HAEMORRHAGE [None]
  - RECTAL DISCHARGE [None]
